FAERS Safety Report 9243422 (Version 1)
Quarter: 2013Q2

REPORT INFORMATION
  Report Type: Spontaneous
  Country: FR (occurrence: FR)
  Receive Date: 20130421
  Receipt Date: 20130421
  Transmission Date: 20140414
  Serious: Yes (Hospitalization)
  Sender: FDA-Public Use
  Company Number: FR-UCBSA-083230

PATIENT
  Age: 88 Year
  Sex: Female
  Weight: 47 kg

DRUGS (12)
  1. KEPPRA [Suspect]
     Route: 048
     Dates: start: 201201
  2. KEPPRA [Suspect]
     Route: 048
     Dates: end: 20130209
  3. STABLON [Suspect]
     Route: 048
  4. STABLON [Suspect]
     Route: 048
     Dates: end: 20130210
  5. LASILIX [Concomitant]
     Dosage: DOSE: 40 MG
  6. PRAVASTATINE [Concomitant]
     Dosage: DOSE: 40 MG DAILY
  7. HEMIGOXINE NATIVELLE [Concomitant]
     Dosage: DOSE: 0.125 MG
     Dates: end: 20130208
  8. LANSOPRAZOLE [Concomitant]
     Dosage: DOSE: 30 MG DAILY
  9. CARDENSIEL [Concomitant]
     Dosage: DOSE: 7.5 MG DAILY
  10. SPECIAFOLDINE [Concomitant]
     Dosage: DOSE: 5 MG DAILY
  11. COUMADINE [Concomitant]
  12. ARANESP [Concomitant]
     Dosage: DOSE: ONE UNIT EVERY THREE WEEKS

REACTIONS (5)
  - Confusional state [Recovered/Resolved]
  - Disorientation [Recovered/Resolved]
  - Fall [Unknown]
  - Weight decreased [Unknown]
  - Renal failure [Recovered/Resolved]
